FAERS Safety Report 7812266-6 (Version None)
Quarter: 2011Q4

REPORT INFORMATION
  Report Type: 
  Country: None (occurrence: None)
  Receive Date: 20111011
  Receipt Date: 20110929
  Transmission Date: 20120403
  Serious: Yes (Other)
  Sender: FDA-Public Use
  Company Number: 2011MA013827

PATIENT
  Age: 44 Year
  Sex: Female

DRUGS (10)
  1. VALPROIC ACID [Concomitant]
  2. SIMVASTATIN [Concomitant]
  3. SODIUM CHLORIDE [Concomitant]
  4. MIRTAZAPINE [Suspect]
     Indication: PRODUCT USED FOR UNKNOWN INDICATION
     Dosage: 15 MG;  ;PO
     Route: 048
     Dates: start: 20110707, end: 20110905
  5. LOFEPRAMINDE [Concomitant]
  6. VALPROIC ACID [Concomitant]
  7. MIRTAZAPINE [Suspect]
     Indication: PRODUCT USED FOR UNKNOWN INDICATION
     Dosage: 15 MG;  ;PO
     Route: 048
     Dates: start: 20110707, end: 20110905
  8. LANSOPRAZOLE [Concomitant]
  9. ZOPICLONE [Concomitant]
  10. LEVOTHYROXINE SODIUM [Concomitant]

REACTIONS (2)
  - PAIN [None]
  - HYPERHIDROSIS [None]
